FAERS Safety Report 8311235-X (Version None)
Quarter: 2012Q2

REPORT INFORMATION
  Report Type: 
  Country: None (occurrence: None)
  Receive Date: 20120425
  Receipt Date: 20120419
  Transmission Date: 20120825
  Serious: Yes (Hospitalization)
  Sender: FDA-Public Use
  Company Number: US-GLAXOSMITHKLINE-A0843840A

PATIENT
  Age: 56 Year
  Sex: Male
  Weight: 112.3 kg

DRUGS (2)
  1. AVANDIA [Suspect]
     Indication: TYPE 2 DIABETES MELLITUS
     Dosage: 8MG PER DAY
     Route: 065
     Dates: start: 20060501, end: 20061101
  2. AVANDAMET [Suspect]
     Indication: TYPE 2 DIABETES MELLITUS
     Dosage: 4MG TWICE PER DAY
     Route: 065
     Dates: start: 20050325, end: 20071031

REACTIONS (3)
  - NEPHROPATHY [None]
  - TRANSIENT ISCHAEMIC ATTACK [None]
  - MYOCARDIAL INFARCTION [None]
